FAERS Safety Report 9563789 (Version 1)
Quarter: 2013Q3

REPORT INFORMATION
  Report Type: Spontaneous
  Country: US (occurrence: None)
  Receive Date: 20130926
  Receipt Date: 20130926
  Transmission Date: 20140515
  Serious: Yes (Hospitalization)
  Sender: FDA-Public Use
  Company Number: 2013-US-000515

PATIENT
  Age: 78 Year
  Sex: Male
  Weight: 96 kg

DRUGS (4)
  1. XYREM [Suspect]
     Indication: CATAPLEXY
     Route: 048
     Dates: start: 20021021
  2. XYREM [Suspect]
     Indication: NARCOLEPSY
     Route: 048
     Dates: start: 20021021
  3. RITALIN (METHYLPHENIDE HYDROCHLORIDE) [Concomitant]
  4. DAILY VITAMINS (VITAMINS NOS) [Concomitant]

REACTIONS (6)
  - Bradycardia [None]
  - Cardiac pacemaker insertion [None]
  - Fall [None]
  - Head injury [None]
  - Amnesia [None]
  - Hypertension [None]
